FAERS Safety Report 24071630 (Version 1)
Quarter: 2024Q3

REPORT INFORMATION
  Report Type: Report from Study
  Country: DE (occurrence: DE)
  Receive Date: 20240710
  Receipt Date: 20240710
  Transmission Date: 20241016
  Serious: No
  Sender: ROCHE
  Company Number: DE-ROCHE-3498629

PATIENT
  Age: 9 Year
  Sex: Male
  Weight: 31.1 kg

DRUGS (4)
  1. EVRYSDI [Suspect]
     Active Substance: RISDIPLAM
     Indication: Spinal muscular atrophy
     Dosage: LAST DOSE 20/JUL/2023,
     Route: 048
     Dates: start: 20210701
  2. EVRYSDI [Suspect]
     Active Substance: RISDIPLAM
     Dosage: ON 05/FEB/2024, HE RECEIVED LAST DOSE OF RISDIPLAM.
     Route: 048
     Dates: start: 20211124
  3. POLYETHYLENE GLYCOLS [Concomitant]
     Active Substance: POLYETHYLENE GLYCOLS
  4. CHOLECALCIFEROL [Concomitant]
     Active Substance: CHOLECALCIFEROL

REACTIONS (3)
  - COVID-19 [Recovered/Resolved]
  - Elbow deformity [Unknown]
  - Joint contracture [Unknown]

NARRATIVE: CASE EVENT DATE: 20231201
